FAERS Safety Report 4322544-3 (Version None)
Quarter: 2004Q1

REPORT INFORMATION
  Report Type: 
  Country: None (occurrence: None)
  Receive Date: 20040322
  Receipt Date: 20040322
  Transmission Date: 20041129
  Serious: Yes (Other)
  Sender: FDA-Public Use
  Company Number: None

PATIENT
  Age: 82 Year
  Sex: Male
  Weight: 92.1 kg

DRUGS (19)
  1. TERAZOSIN HCL [Suspect]
  2. BRIMONIDINE TARTRATE [Concomitant]
  3. TAMSULOSIN HCL [Concomitant]
  4. AMLODIPINE BESYLATE [Concomitant]
  5. FORMOTEROL FUMARATE INH [Concomitant]
  6. OMEPRAZOLE [Concomitant]
  7. ALLOPURINOL [Concomitant]
  8. PROPOXYPHENE N 100/APAP [Concomitant]
  9. DOCUSATE NA [Concomitant]
  10. CODEINE 30/ ACETAMINOPHEN [Concomitant]
  11. MENTHOL 10% /METHYL SALIC [Concomitant]
  12. PREDNISOLONE ACETATE [Concomitant]
  13. LATANOPROST [Concomitant]
  14. MILK OF MAGNESIA TAB [Concomitant]
  15. PSYLLIUM SF [Concomitant]
  16. SENNOSIDES [Concomitant]
  17. HYDROXYPROPYL ME CELLULOSE [Concomitant]
  18. HYDROXYZINE PAMOATE [Concomitant]
  19. ALBUTEROL [Concomitant]

REACTIONS (1)
  - DIZZINESS [None]
